FAERS Safety Report 14178141 (Version 2)
Quarter: 2018Q2

REPORT INFORMATION
  Report Type: Spontaneous
  Country: US (occurrence: US)
  Receive Date: 20171110
  Receipt Date: 20180418
  Transmission Date: 20180711
  Serious: Yes (Other)
  Sender: FDA-Public Use
  Company Number: US-BAYER-2017-213425

PATIENT
  Age: 51 Year
  Sex: Male

DRUGS (1)
  1. KOGENATE FS [Suspect]
     Active Substance: ANTIHEMOPHILIC FACTOR, HUMAN RECOMBINANT
     Indication: FACTOR VIII DEFICIENCY
     Dosage: UNK (3600U - BIW AND PM BLEEDS DAILY X 2 DAYS THEM CALL MD IF STILL)
     Route: 042
     Dates: start: 20070507

REACTIONS (1)
  - Haemarthrosis [None]
